FAERS Safety Report 24706064 (Version 1)
Quarter: 2024Q4

REPORT INFORMATION
  Report Type: Spontaneous
  Country: TH (occurrence: TH)
  Receive Date: 20241206
  Receipt Date: 20241206
  Transmission Date: 20250115
  Serious: Yes (Other)
  Sender: SANDOZ
  Company Number: TH-002147023-NVSC2024TH075874

PATIENT
  Sex: Female

DRUGS (4)
  1. KISQALI [Suspect]
     Active Substance: RIBOCICLIB
     Indication: Breast cancer metastatic
     Dosage: 200 MG
     Route: 048
     Dates: start: 20240514
  2. ANASTROZOLE [Interacting]
     Active Substance: ANASTROZOLE
     Indication: Product used for unknown indication
     Dosage: 3 DF, QD
     Route: 048
  3. ANASTROZOLE [Interacting]
     Active Substance: ANASTROZOLE
     Dosage: UNK
     Route: 048
  4. ANASTROZOLE [Interacting]
     Active Substance: ANASTROZOLE
     Dosage: UNK
     Route: 065

REACTIONS (3)
  - Pneumonitis [Unknown]
  - Pneumonia [Unknown]
  - Drug interaction [Unknown]
